FAERS Safety Report 5485224-7 (Version None)
Quarter: 2007Q4

REPORT INFORMATION
  Report Type: 
  Country: None (occurrence: None)
  Receive Date: 20071015
  Receipt Date: 20071002
  Transmission Date: 20080405
  Serious: Yes (Death, Hospitalization, Other)
  Sender: FDA-Public Use
  Company Number: US-ELI_LILLY_AND_COMPANY-US200709005893

PATIENT
  Sex: Male

DRUGS (13)
  1. ZYPREXA [Suspect]
  2. COMTAN [Concomitant]
  3. SINEMET [Concomitant]
  4. MIRAPEX [Concomitant]
     Dosage: 2.25 MG, UNK
  5. MIRAPEX [Concomitant]
     Dosage: 6 MG, EVERY 6 HRS
  6. MIRAPEX [Concomitant]
     Dosage: 1.5 MG, UNK
  7. LOVENOX [Concomitant]
     Indication: PROPHYLAXIS
  8. VALPROIC ACID [Concomitant]
  9. VICODIN [Concomitant]
  10. CYMBALTA [Concomitant]
  11. VITAMIN B COMPLEX (BECOTIN) [Concomitant]
  12. MELATONIN [Concomitant]
  13. MULTI-VITAMIN [Concomitant]

REACTIONS (10)
  - CONVULSION [None]
  - DEATH [None]
  - DIABETES MELLITUS [None]
  - DIABETIC COMA [None]
  - ESCHERICHIA INFECTION [None]
  - FALL [None]
  - HAEMATURIA [None]
  - HAEMORRHAGE [None]
  - PARKINSON'S DISEASE [None]
  - PNEUMONIA [None]
